FAERS Safety Report 6767733-3 (Version None)
Quarter: 2010Q2

REPORT INFORMATION
  Report Type: 
  Country: None (occurrence: None)
  Receive Date: 20100614
  Receipt Date: 20100603
  Transmission Date: 20101027
  Serious: Yes (Other)
  Sender: FDA-Public Use
  Company Number: US-JNJFOC-20100601618

PATIENT
  Age: 82 Year
  Sex: Male
  Weight: 65.77 kg

DRUGS (4)
  1. EXTRA STRENGTH TYLENOL [Suspect]
     Route: 048
  2. EXTRA STRENGTH TYLENOL [Suspect]
     Indication: ARTHRALGIA
     Dosage: 1 OR 2 CAPLETS (500MG OR 1000MG), TWICE A DAY.
     Route: 048
  3. LIPITOR [Concomitant]
     Indication: BLOOD CHOLESTEROL INCREASED
     Dosage: 1 DAILY AT BEDTIME
     Route: 065
  4. METOPROLOL TARTRATE [Concomitant]
     Indication: HYPERTENSION
     Route: 065

REACTIONS (3)
  - ABDOMINAL PAIN UPPER [None]
  - PRODUCT ODOUR ABNORMAL [None]
  - PRODUCT QUALITY ISSUE [None]
